FAERS Safety Report 9894968 (Version 2)
Quarter: 2014Q1

REPORT INFORMATION
  Report Type: Spontaneous
  Country: US (occurrence: US)
  Receive Date: 20140213
  Receipt Date: 20140213
  Transmission Date: 20141002
  Serious: No
  Sender: FDA-Public Use
  Company Number: US-BRISTOL-MYERS SQUIBB COMPANY-17255860

PATIENT
  Age: 61 Year
  Sex: Male

DRUGS (2)
  1. ORENCIA [Suspect]
     Indication: RHEUMATOID ARTHRITIS
     Dosage: LAST INFUSION:  12DEC2012?ORENCIA INJECTION, POWDER, LYOPHILIZED, FOR SOLUTION?STRENGTH:250MG
     Route: 042
  2. PREDNISONE [Suspect]

REACTIONS (6)
  - Pain in extremity [Recovering/Resolving]
  - Weight increased [Unknown]
  - Cough [Unknown]
  - Nasopharyngitis [Unknown]
  - Tooth disorder [Unknown]
  - Drug ineffective [Unknown]
